FAERS Safety Report 20851757 (Version 1)
Quarter: 2022Q2

REPORT INFORMATION
  Report Type: Spontaneous
  Country: RU (occurrence: RU)
  Receive Date: 20220520
  Receipt Date: 20220520
  Transmission Date: 20220721
  Serious: Yes (Other)
  Sender: FDA-Public Use
  Company Number: RU-BEH-2022145514

PATIENT
  Age: 8 Year
  Sex: Female
  Weight: 18 kg

DRUGS (6)
  1. PRIVIGEN [Suspect]
     Active Substance: HUMAN IMMUNOGLOBULIN G
     Indication: Sepsis
     Dosage: 5 GRAM
     Route: 042
     Dates: start: 20201221, end: 20201221
  2. TOPIRAMATE [Concomitant]
     Active Substance: TOPIRAMATE
     Route: 048
  3. PHENOBARBITAL [Concomitant]
     Active Substance: PHENOBARBITAL
     Route: 048
  4. MEROPENEM [Concomitant]
     Active Substance: MEROPENEM
     Route: 042
  5. LINEZOLID [Concomitant]
     Active Substance: LINEZOLID
     Route: 042
  6. POLYMYXIN B [Concomitant]
     Active Substance: POLYMYXIN B
     Route: 042

REACTIONS (7)
  - Partial seizures [Recovered/Resolved]
  - Altered state of consciousness [Recovered/Resolved]
  - Vomiting [Recovered/Resolved]
  - Hypoxia [Recovered/Resolved]
  - Bradycardia [Recovered/Resolved]
  - No adverse event [Unknown]
  - Off label use [Unknown]

NARRATIVE: CASE EVENT DATE: 20201221
